FAERS Safety Report 10182673 (Version 1)
Quarter: 2014Q2

REPORT INFORMATION
  Report Type: Spontaneous
  Country: CH (occurrence: None)
  Receive Date: 20140516
  Receipt Date: 20140516
  Transmission Date: 20141212
  Serious: Yes (Hospitalization)
  Sender: FDA-Public Use
  Company Number: 20140264

PATIENT
  Age: 91 Year
  Sex: Male
  Weight: 63 kg

DRUGS (10)
  1. FERINJECT [Suspect]
     Indication: IRON DEFICIENCY ANAEMIA
     Dosage: 1 IN 1 TOTAL
     Route: 040
     Dates: start: 20140404, end: 20140404
  2. DIGOXIN (LANOXIN) [Concomitant]
  3. BUMETANIDE [Concomitant]
  4. PATROPRAZOLE [Concomitant]
  5. ENALAPRIL [Concomitant]
  6. MACROGOL [Concomitant]
  7. ALFUZOSIN [Concomitant]
  8. PHENPROCOUMON [Concomitant]
  9. FOLIC ACID [Concomitant]
  10. BISOPROLOL [Concomitant]

REACTIONS (6)
  - Overdose [None]
  - Myalgia [None]
  - Pain [None]
  - Neck pain [None]
  - Chest pain [None]
  - Drug interaction [None]
